FAERS Safety Report 23205088 (Version 1)
Quarter: 2023Q4

REPORT INFORMATION
  Report Type: Spontaneous
  Country: DE (occurrence: DE)
  Receive Date: 20231120
  Receipt Date: 20231120
  Transmission Date: 20240110
  Serious: Yes (Other)
  Sender: FDA-Public Use
  Company Number: DE-ACRAF SpA-2023-032545

PATIENT

DRUGS (4)
  1. XCOPRI [Suspect]
     Active Substance: CENOBAMATE
     Indication: Epilepsy
     Dosage: 400 MILLIGRAM
     Route: 048
  2. VIMPAT [Suspect]
     Active Substance: LACOSAMIDE
     Indication: Epilepsy
     Route: 065
  3. OXCARBAZEPINE [Suspect]
     Active Substance: OXCARBAZEPINE
     Indication: Epilepsy
     Dosage: 1200 MILLIGRAM
     Route: 065
  4. RIVOTRIL [Suspect]
     Active Substance: CLONAZEPAM
     Indication: Epilepsy
     Route: 065

REACTIONS (3)
  - Drug ineffective [Unknown]
  - Injury [Unknown]
  - Off label use [Unknown]
